FAERS Safety Report 12213247 (Version 1)
Quarter: 2016Q1

REPORT INFORMATION
  Report Type: Spontaneous
  Country: US (occurrence: US)
  Receive Date: 20160328
  Receipt Date: 20160328
  Transmission Date: 20160526
  Serious: No
  Sender: FDA-Public Use
  Company Number: US-BAYER-2016-050151

PATIENT
  Age: 83 Year
  Sex: Male
  Weight: 96.15 kg

DRUGS (1)
  1. ALEVE [Suspect]
     Active Substance: NAPROXEN SODIUM
     Indication: PAIN
     Dosage: 1 DF, BID
     Route: 048
     Dates: start: 2012

REACTIONS (4)
  - Product use issue [None]
  - Therapeutic response unexpected [None]
  - Intentional product use issue [None]
  - Circumstance or information capable of leading to medication error [None]
